FAERS Safety Report 7221304-3 (Version None)
Quarter: 2011Q1

REPORT INFORMATION
  Report Type: 
  Country: None (occurrence: None)
  Receive Date: 20110112
  Receipt Date: 20101022
  Transmission Date: 20110831
  Serious: No
  Sender: FDA-Public Use
  Company Number: US-BAYER-201022559BCC

PATIENT
  Sex: Female

DRUGS (5)
  1. ALEVE [Suspect]
     Indication: ARTHRALGIA
  2. MOTRIN [Concomitant]
     Indication: ARTHRALGIA
  3. UNCODEABLE ^UNCLASSIFIABLE^ [Concomitant]
     Indication: ARTHRALGIA
  4. TRAMADOL [Concomitant]
     Indication: ARTHRALGIA
  5. ADVIL LIQUI-GELS [Concomitant]
     Indication: ARTHRALGIA

REACTIONS (1)
  - ARTHRALGIA [None]
